FAERS Safety Report 5516630-X (Version None)
Quarter: 2007Q4

REPORT INFORMATION
  Report Type: 
  Country: None (occurrence: None)
  Receive Date: 20071109
  Receipt Date: 20071025
  Transmission Date: 20080405
  Serious: Yes (Hospitalization)
  Sender: FDA-Public Use
  Company Number: 2007S1011075

PATIENT
  Sex: Male

DRUGS (2)
  1. MIRTAZAPINE [Suspect]
     Indication: DEPRESSION
     Dosage: 45 MG; DAILY; ORAL
     Route: 048
     Dates: start: 20040901, end: 20060116
  2. OLANZAPINE [Concomitant]

REACTIONS (3)
  - AGRANULOCYTOSIS [None]
  - PHARYNGITIS [None]
  - PYREXIA [None]
